FAERS Safety Report 21224024 (Version 1)
Quarter: 2022Q3

REPORT INFORMATION
  Report Type: Spontaneous
  Country: US (occurrence: US)
  Receive Date: 20220817
  Receipt Date: 20220817
  Transmission Date: 20221027
  Serious: No
  Sender: FDA-Public Use
  Company Number: US-SA-2021MK000106

PATIENT
  Age: 59 Year
  Sex: Male
  Weight: 64.922 kg

DRUGS (5)
  1. AFREZZA [Suspect]
     Active Substance: INSULIN HUMAN
     Indication: Type 2 diabetes mellitus
     Dosage: 24-36 UNITS
     Dates: start: 2020
  2. FARXIGA [Concomitant]
     Active Substance: DAPAGLIFLOZIN PROPANEDIOL
     Indication: Product used for unknown indication
  3. PRANDIN [Concomitant]
     Active Substance: REPAGLINIDE
     Indication: Type 2 diabetes mellitus
     Dates: start: 2011
  4. GLUCOPHAGE [Concomitant]
     Active Substance: METFORMIN HYDROCHLORIDE
     Indication: Type 2 diabetes mellitus
     Dates: start: 2011
  5. TRESIBA [Concomitant]
     Active Substance: INSULIN DEGLUDEC
     Indication: Type 2 diabetes mellitus
     Dates: start: 2016

REACTIONS (8)
  - Blood glucose decreased [Unknown]
  - Blood glucose increased [Unknown]
  - Blood glucose fluctuation [Unknown]
  - Cough [Unknown]
  - Drug ineffective [Unknown]
  - Intentional product use issue [Unknown]
  - Product dispensing issue [Unknown]
  - Product residue present [Unknown]

NARRATIVE: CASE EVENT DATE: 20210701
